FAERS Safety Report 19867222 (Version 2)
Quarter: 2021Q4

REPORT INFORMATION
  Report Type: Spontaneous
  Country: US (occurrence: US)
  Receive Date: 20210921
  Receipt Date: 20211123
  Transmission Date: 20220303
  Serious: Yes (Other)
  Sender: FDA-Public Use
  Company Number: US-BAYER-2021-212664

PATIENT
  Age: 34 Year
  Sex: Female
  Weight: 67.1 kg

DRUGS (1)
  1. MIRENA [Suspect]
     Active Substance: LEVONORGESTREL
     Indication: Contraception
     Dosage: 20?G/DAY
     Route: 015
     Dates: start: 201907, end: 20210611

REACTIONS (6)
  - Endometriosis ablation [None]
  - Intra-uterine contraceptive device removal [None]
  - Nausea [None]
  - Pain [None]
  - Amenorrhoea [Recovered/Resolved]
  - Heavy menstrual bleeding [None]

NARRATIVE: CASE EVENT DATE: 20210611
